FAERS Safety Report 11250022 (Version 1)
Quarter: 2015Q3

REPORT INFORMATION
  Report Type: Spontaneous
  Country: US (occurrence: US)
  Receive Date: 20150708
  Receipt Date: 20150708
  Transmission Date: 20151125
  Serious: Yes (Hospitalization)
  Sender: FDA-Public Use
  Company Number: US-ELI_LILLY_AND_COMPANY-US200807001855

PATIENT
  Age: 27 Year
  Sex: Female

DRUGS (3)
  1. SYMBYAX [Suspect]
     Active Substance: FLUOXETINE HYDROCHLORIDE\OLANZAPINE
     Indication: BIPOLAR DISORDER
     Dosage: 1 D/F, UNK
     Dates: start: 20080502, end: 20080707
  2. STRATTERA [Concomitant]
     Active Substance: ATOMOXETINE HYDROCHLORIDE
     Dosage: 60 UNK, UNK
     Dates: start: 20080703
  3. AMBIEN [Concomitant]
     Active Substance: ZOLPIDEM TARTRATE

REACTIONS (6)
  - Hyperglycaemia [Unknown]
  - Asthenia [Unknown]
  - Thirst [Unknown]
  - Vision blurred [Unknown]
  - Dizziness [Unknown]
  - Pollakiuria [Unknown]
